FAERS Safety Report 20472864 (Version 4)
Quarter: 2023Q1

REPORT INFORMATION
  Report Type: Report from Study
  Country: CA (occurrence: CA)
  Receive Date: 20220215
  Receipt Date: 20230209
  Transmission Date: 20230417
  Serious: Yes (Hospitalization)
  Sender: FDA-Public Use
  Company Number: CA-JNJFOC-20220230327

PATIENT
  Age: 46 Year
  Sex: Male
  Weight: 136.4 kg

DRUGS (2)
  1. SIMPONI [Suspect]
     Active Substance: GOLIMUMAB
     Indication: Rheumatoid arthritis
     Dosage: STRENGTH = 50 MG
     Route: 058
     Dates: start: 20200118, end: 20211029
  2. SIMPONI [Suspect]
     Active Substance: GOLIMUMAB
     Indication: Psoriatic arthropathy
     Route: 058

REACTIONS (2)
  - Metabolic surgery [Unknown]
  - COVID-19 [Unknown]

NARRATIVE: CASE EVENT DATE: 20211216
